FAERS Safety Report 15404474 (Version 2)
Quarter: 2018Q4

REPORT INFORMATION
  Report Type: Report from Study
  Country: US (occurrence: US)
  Receive Date: 20180919
  Receipt Date: 20181102
  Transmission Date: 20190204
  Serious: Yes (Hospitalization, Other)
  Sender: FDA-Public Use
  Company Number: US-SHIRE-US201835747

PATIENT
  Age: 43 Year
  Sex: Male
  Weight: 48.53 kg

DRUGS (2)
  1. GATTEX [Suspect]
     Active Substance: TEDUGLUTIDE\WATER
     Indication: SHORT-BOWEL SYNDROME
     Dosage: 2.42 MG, 1X/DAY:QD
     Route: 065
     Dates: start: 20180327, end: 20181019
  2. GATTEX [Suspect]
     Active Substance: TEDUGLUTIDE\WATER
     Dosage: 2.42 MG, 1X/DAY:QD
     Route: 058
     Dates: start: 20180323, end: 20181019

REACTIONS (3)
  - Blood potassium decreased [Unknown]
  - White blood cell count increased [Unknown]
  - Neoplasm progression [Unknown]

NARRATIVE: CASE EVENT DATE: 20180906
